FAERS Safety Report 8151241-1 (Version None)
Quarter: 2012Q1

REPORT INFORMATION
  Report Type: 
  Country: None (occurrence: None)
  Receive Date: 20120220
  Receipt Date: 20120214
  Transmission Date: 20120608
  Serious: Yes (Life-Threatening, Hospitalization, Other)
  Sender: FDA-Public Use
  Company Number: ES-ASTRAZENECA-2012SE06304

PATIENT
  Age: 21354 Day
  Sex: Female

DRUGS (7)
  1. SPIRIVA 18 [Concomitant]
     Dosage: SPIRIVA 18 1 INHALATION/24 HOURS
  2. PAROXETINE HCL [Concomitant]
     Route: 048
  3. NOCTAMID [Concomitant]
     Route: 048
  4. VIMOVO [Suspect]
     Indication: PYREXIA
     Dosage: 1 TABLET TWICE A DAY
     Route: 048
     Dates: start: 20120119
  5. MOXIFLOXACIN [Concomitant]
  6. VIMOVO [Suspect]
     Indication: ARTHRALGIA
     Dosage: 1 TABLET TWICE A DAY
     Route: 048
     Dates: start: 20120119
  7. ONBREZ [Concomitant]
     Dosage: 150, 1 INHALATION/24 HOURS

REACTIONS (1)
  - ANAPHYLACTIC SHOCK [None]
